FAERS Safety Report 7268730-4 (Version None)
Quarter: 2011Q1

REPORT INFORMATION
  Report Type: 
  Country: None (occurrence: None)
  Receive Date: 20110201
  Receipt Date: 20110124
  Transmission Date: 20110831
  Serious: Yes (Other)
  Sender: FDA-Public Use
  Company Number: US-CEPHALON-2011000374

PATIENT
  Sex: Female
  Weight: 61 kg

DRUGS (14)
  1. AMRIX [Suspect]
     Indication: MUSCLE SPASMS
     Route: 048
     Dates: start: 20100701
  2. OMEPRAZOLE [Concomitant]
     Dates: start: 20100101
  3. DILTIAZEM [Concomitant]
     Indication: HYPERTENSION
  4. LEVOTHYROXINE SODIUM [Concomitant]
     Dates: start: 19900101
  5. AMBIEN [Concomitant]
     Dates: start: 20100101
  6. AMRIX [Suspect]
     Indication: NECK PAIN
  7. AMRIX [Suspect]
     Indication: BACK PAIN
  8. TOPAMAX [Suspect]
     Indication: NECK PAIN
     Dates: start: 20100701
  9. TOPAMAX [Suspect]
     Indication: BACK PAIN
  10. DIOVAN [Concomitant]
     Indication: HYPERTENSION
  11. GLUCOPHAGE [Concomitant]
     Dates: start: 20060101
  12. BYETTA [Concomitant]
     Dates: start: 20100101
  13. LISINOPRIL [Concomitant]
     Dates: start: 20101101
  14. PRAVACHOL [Concomitant]

REACTIONS (3)
  - WEIGHT DECREASED [None]
  - DRUG PRESCRIBING ERROR [None]
  - NEPHROLITHIASIS [None]
